FAERS Safety Report 18174128 (Version 3)
Quarter: 2020Q3

REPORT INFORMATION
  Report Type: Spontaneous
  Country: US (occurrence: US)
  Receive Date: 20200820
  Receipt Date: 20200918
  Transmission Date: 20201103
  Serious: Yes (Hospitalization, Other)
  Sender: FDA-Public Use
  Company Number: US-AUROBINDO-AUR-APL-2020-038924

PATIENT
  Age: 61 Year
  Sex: Male

DRUGS (1)
  1. METHOTREXATE. [Suspect]
     Active Substance: METHOTREXATE
     Indication: RHEUMATOID ARTHRITIS
     Dosage: 2.5 MILLIGRAM, ONCE A DAY
     Route: 048

REACTIONS (6)
  - Purpura [Recovered/Resolved]
  - Thrombocytopenia [Recovering/Resolving]
  - Toxicity to various agents [Recovered/Resolved]
  - Blister [Recovered/Resolved]
  - Neutropenia [Recovering/Resolving]
  - Myelosuppression [Recovering/Resolving]
